FAERS Safety Report 9630388 (Version 1)
Quarter: 2013Q4

REPORT INFORMATION
  Report Type: Spontaneous
  Country: US (occurrence: US)
  Receive Date: 20131018
  Receipt Date: 20131018
  Transmission Date: 20140711
  Serious: Yes (Hospitalization)
  Sender: FDA-Public Use
  Company Number: US-BIOGENIDEC-2013BI099226

PATIENT
  Age: 59 Year
  Sex: Female

DRUGS (1)
  1. AVONEX [Suspect]
     Indication: MULTIPLE SCLEROSIS
     Route: 030
     Dates: start: 20060730

REACTIONS (7)
  - Nerve root compression [Recovered/Resolved]
  - Musculoskeletal disorder [Not Recovered/Not Resolved]
  - Hallucination [Recovered/Resolved]
  - Gait disturbance [Not Recovered/Not Resolved]
  - Visual impairment [Not Recovered/Not Resolved]
  - Injection site scar [Not Recovered/Not Resolved]
  - Multiple sclerosis relapse [Recovered/Resolved]
